FAERS Safety Report 7357729-5 (Version None)
Quarter: 2011Q1

REPORT INFORMATION
  Report Type: 
  Country: None (occurrence: None)
  Receive Date: 20110309
  Receipt Date: 20110225
  Transmission Date: 20110831
  Serious: Yes (Other)
  Sender: FDA-Public Use
  Company Number: 1000019113

PATIENT
  Age: 46 Year
  Sex: Female

DRUGS (2)
  1. CITALOPRAM (CITALOPRAM HYDROBROMIDE) (TABLETS) [Suspect]
     Dosage: 20 MG (20 MG 1 IN  D),ORAL
     Route: 048
  2. ALCOHOL (ETHANOL) [Suspect]

REACTIONS (2)
  - DRUG INTERACTION [None]
  - ROAD TRAFFIC ACCIDENT [None]
